FAERS Safety Report 7407478-X (Version None)
Quarter: 2011Q2

REPORT INFORMATION
  Report Type: 
  Country: None (occurrence: None)
  Receive Date: 20110412
  Receipt Date: 20110306
  Transmission Date: 20111010
  Serious: Yes (Other)
  Sender: FDA-Public Use
  Company Number: GB-AMGEN-GBRSP2011018726

PATIENT
  Age: 60 Year
  Sex: Male

DRUGS (6)
  1. ENBREL [Suspect]
     Indication: PRODUCT USED FOR UNKNOWN INDICATION
     Dosage: 50 MG, WEEKLY
     Route: 058
  2. FOLIC ACID [Concomitant]
     Dosage: UNK
  3. AMLODIPINE [Concomitant]
     Dosage: UNK
  4. SIMVASTATIN [Concomitant]
     Dosage: UNK
  5. PREDNISOLONE [Concomitant]
     Dosage: UNK
  6. VENTOLIN [Concomitant]
     Dosage: UNK
     Route: 055

REACTIONS (2)
  - YELLOW SKIN [None]
  - LOWER RESPIRATORY TRACT INFECTION [None]
